FAERS Safety Report 22280117 (Version 1)
Quarter: 2023Q2

REPORT INFORMATION
  Report Type: Spontaneous
  Country: CN (occurrence: None)
  Receive Date: 20230503
  Receipt Date: 20230503
  Transmission Date: 20230722
  Serious: Yes (Hospitalization)
  Sender: FDA-Public Use
  Company Number: 2023A080548

PATIENT
  Age: 53 Year
  Sex: Male

DRUGS (3)
  1. TAGRISSO [Suspect]
     Active Substance: OSIMERTINIB
     Indication: Lung adenocarcinoma
     Route: 048
  2. COBAMAMIDE [Concomitant]
     Active Substance: COBAMAMIDE
     Indication: Nerve injury
  3. BICYCLOL [Concomitant]
     Active Substance: BICYCLOL
     Indication: Liver disorder
     Route: 048

REACTIONS (3)
  - Hypoaesthesia [Not Recovered/Not Resolved]
  - White blood cell count decreased [Recovering/Resolving]
  - Platelet count decreased [Recovering/Resolving]

NARRATIVE: CASE EVENT DATE: 20230301
